FAERS Safety Report 24686712 (Version 2)
Quarter: 2024Q4

REPORT INFORMATION
  Report Type: Spontaneous
  Country: ES (occurrence: ES)
  Receive Date: 20241202
  Receipt Date: 20241205
  Transmission Date: 20250115
  Serious: Yes (Other)
  Sender: OTSUKA
  Company Number: None

PATIENT
  Age: 19 Year
  Sex: Male
  Weight: 72 kg

DRUGS (1)
  1. ARIPIPRAZOLE [Suspect]
     Active Substance: ARIPIPRAZOLE
     Indication: Product used for unknown indication
     Dosage: 800 MG, QM
     Route: 030
     Dates: start: 20241021

REACTIONS (4)
  - Hypertonia [Recovering/Resolving]
  - Somnolence [Recovering/Resolving]
  - Tremor [Recovering/Resolving]
  - Dystonia [Recovering/Resolving]

NARRATIVE: CASE EVENT DATE: 20241022
